FAERS Safety Report 14302595 (Version 1)
Quarter: 2017Q4

REPORT INFORMATION
  Report Type: Spontaneous
  Country: US (occurrence: US)
  Receive Date: 20171219
  Receipt Date: 20171219
  Transmission Date: 20180321
  Serious: No
  Sender: FDA-Public Use
  Company Number: US-RECKITT BENCKISER HEALTHCARE INT LIMITED-RB-95103-2017

PATIENT
  Sex: Male

DRUGS (4)
  1. DELSYM [Suspect]
     Active Substance: DEXTROMETHORPHAN
     Indication: UPPER-AIRWAY COUGH SYNDROME
  2. DELSYM [Suspect]
     Active Substance: DEXTROMETHORPHAN
     Indication: UPPER-AIRWAY COUGH SYNDROME
  3. DELSYM [Suspect]
     Active Substance: DEXTROMETHORPHAN
     Indication: COUGH
     Dosage: UNK, TOOK OF ONE CAP FULL OF THE PRODUCT
     Route: 065
     Dates: start: 20170708
  4. DELSYM [Suspect]
     Active Substance: DEXTROMETHORPHAN
     Indication: COUGH
     Dosage: UNK, TOOK ONE FULL CUP OF PRODUCT
     Route: 065
     Dates: start: 20170708

REACTIONS (1)
  - Drug ineffective [Not Recovered/Not Resolved]
